FAERS Safety Report 5581410-6 (Version None)
Quarter: 2008Q1

REPORT INFORMATION
  Report Type: 
  Country: None (occurrence: None)
  Receive Date: 20080104
  Receipt Date: 20071231
  Transmission Date: 20080703
  Serious: Yes (Hospitalization)
  Sender: FDA-Public Use
  Company Number: US-BRISTOL-MYERS SQUIBB COMPANY-14009591

PATIENT
  Age: 47 Year
  Sex: Female

DRUGS (7)
  1. IXEMPRA [Suspect]
     Indication: BREAST CANCER
     Dosage: 1 DOSAGE FORM= 65
     Route: 042
     Dates: start: 20071129
  2. XELODA [Suspect]
     Route: 048
  3. EFFEXOR [Concomitant]
     Route: 048
  4. LORTAB [Concomitant]
     Dosage: Q.4-6H. P.R.N.
  5. DURAGESIC-100 [Concomitant]
     Route: 061
  6. ZOFRAN [Concomitant]
  7. MARINOL [Concomitant]

REACTIONS (1)
  - PANCREATITIS [None]
